FAERS Safety Report 6501355-4 (Version None)
Quarter: 2009Q4

REPORT INFORMATION
  Report Type: 
  Country: None (occurrence: None)
  Receive Date: 20091216
  Receipt Date: 20091207
  Transmission Date: 20100525
  Serious: Yes (Disabling)
  Sender: FDA-Public Use
  Company Number: JP-JNJFOC-20091203028

PATIENT
  Sex: Female
  Weight: 52 kg

DRUGS (17)
  1. DOXORUBICIN HCL [Suspect]
     Indication: OVARIAN CANCER RECURRENT
     Dosage: CYCLE 2
     Route: 042
     Dates: start: 20090701, end: 20090729
  2. DOXORUBICIN HCL [Suspect]
     Dosage: CYCLE 1
     Route: 042
     Dates: start: 20090701, end: 20090729
  3. WARFARIN SODIUM [Concomitant]
     Indication: PROPHYLAXIS
     Route: 048
     Dates: start: 20090813, end: 20091003
  4. METHYCOBAL [Concomitant]
     Route: 048
  5. LENDORMIN D [Concomitant]
     Route: 048
  6. MAGNESIUM OXIDE [Concomitant]
     Route: 048
  7. LAXOBERON [Concomitant]
     Route: 048
  8. PRIMPERAN TAB [Concomitant]
     Route: 048
  9. FOROCYLE S [Concomitant]
     Route: 042
  10. FILGRASTIM [Concomitant]
     Route: 065
  11. LOXONIN [Concomitant]
     Route: 048
  12. ADONA [Concomitant]
     Route: 048
     Dates: start: 20090803, end: 20090813
  13. PASTARON [Concomitant]
     Indication: PROPHYLAXIS
     Route: 061
  14. AZUNOL [Concomitant]
     Indication: PROPHYLAXIS
     Route: 002
     Dates: start: 20090813, end: 20090825
  15. XYLOCAINE [Concomitant]
     Route: 002
  16. DEXALTIN [Concomitant]
     Route: 061
     Dates: start: 20090813, end: 20090825
  17. POLAPREZINC [Concomitant]
     Indication: PROPHYLAXIS
     Route: 048

REACTIONS (1)
  - INTESTINAL FISTULA [None]
